FAERS Safety Report 6675365-0 (Version None)
Quarter: 2010Q2

REPORT INFORMATION
  Report Type: 
  Country: None (occurrence: None)
  Receive Date: 20100409
  Receipt Date: 20100224
  Transmission Date: 20101027
  Serious: No
  Sender: FDA-Public Use
  Company Number: A0847383A

PATIENT
  Sex: Female

DRUGS (2)
  1. TYKERB [Suspect]
     Indication: DRUG USE FOR UNKNOWN INDICATION
     Dosage: 2TAB TWICE PER DAY
     Route: 065
     Dates: start: 20100217
  2. XELODA [Suspect]
     Indication: DRUG USE FOR UNKNOWN INDICATION
     Route: 065

REACTIONS (2)
  - FATIGUE [None]
  - ORAL CANDIDIASIS [None]
